FAERS Safety Report 4768888-2 (Version None)
Quarter: 2005Q3

REPORT INFORMATION
  Report Type: 
  Country: None (occurrence: None)
  Receive Date: 20050914
  Receipt Date: 20050907
  Transmission Date: 20060218
  Serious: Yes (Hospitalization)
  Sender: FDA-Public Use
  Company Number: NL-MERCK-0509NLD00003

PATIENT
  Age: 70 Year
  Sex: Male

DRUGS (3)
  1. VIOXX [Suspect]
     Indication: ARTHRITIS
     Route: 048
     Dates: start: 20020108, end: 20041115
  2. HYDROCHLOROTHIAZIDE [Concomitant]
     Route: 048
  3. DICLOFENAC SODIUM AND MISOPROSTOL [Concomitant]
     Route: 048
     Dates: start: 20050614

REACTIONS (1)
  - ACUTE CORONARY SYNDROME [None]
